FAERS Safety Report 24724011 (Version 2)
Quarter: 2024Q4

REPORT INFORMATION
  Report Type: Spontaneous
  Country: DE (occurrence: DE)
  Receive Date: 20241211
  Receipt Date: 20241223
  Transmission Date: 20250115
  Serious: No
  Sender: UCB
  Company Number: DE-UCBSA-2024064589

PATIENT

DRUGS (1)
  1. NEUPRO [Suspect]
     Active Substance: ROTIGOTINE
     Indication: Product used for unknown indication
     Dosage: 2 MILLIGRAM, ONCE DAILY (QD)
     Route: 062

REACTIONS (2)
  - Product adhesion issue [Unknown]
  - Product packaging issue [Unknown]
